FAERS Safety Report 20976860 (Version 1)
Quarter: 2022Q2

REPORT INFORMATION
  Report Type: Spontaneous
  Country: CA (occurrence: None)
  Receive Date: 20220617
  Receipt Date: 20220617
  Transmission Date: 20220720
  Serious: Yes (Hospitalization)
  Sender: FDA-Public Use
  Company Number: CA-ROCHE-3115212

PATIENT
  Age: 62 Year
  Sex: Male
  Weight: 89 kg

DRUGS (14)
  1. ACTEMRA [Suspect]
     Active Substance: TOCILIZUMAB
     Indication: COVID-19
     Dosage: 4 SINGLE USE VIALS. PRESERVATIVE FREE
     Route: 042
  2. IRBESARTAN [Concomitant]
     Active Substance: IRBESARTAN
  3. DUTASTERIDE [Concomitant]
     Active Substance: DUTASTERIDE
  4. POLYETHYLENE GLYCOL 3350 [Concomitant]
     Active Substance: POLYETHYLENE GLYCOL 3350
     Route: 048
  5. ACETAMINOPHEN [Concomitant]
     Active Substance: ACETAMINOPHEN
     Dosage: NOT SPECIFIED
  6. DEXILANT [Concomitant]
     Active Substance: DEXLANSOPRAZOLE
     Dosage: DELAYED RELEASE
  7. GLYCERIN [Concomitant]
     Active Substance: GLYCERIN
     Dosage: NOT SPECIFIED
  8. BISACODYL [Concomitant]
     Active Substance: BISACODYL
  9. TAMSULOSIN [Concomitant]
     Active Substance: TAMSULOSIN
     Dosage: EXTENDED RELEASE
  10. LOVENOX [Concomitant]
     Active Substance: ENOXAPARIN SODIUM
     Route: 058
  11. NIFEDIPINE [Concomitant]
     Active Substance: NIFEDIPINE
  12. DECADRON [Concomitant]
     Active Substance: DEXAMETHASONE
     Dosage: NOT SPECIFIED
  13. ZOPICLONE [Concomitant]
     Active Substance: ZOPICLONE
  14. SENNOSIDES [Concomitant]
     Active Substance: SENNOSIDES

REACTIONS (4)
  - White blood cell count decreased [Recovered/Resolved]
  - Bicytopenia [Recovered/Resolved]
  - Platelet count decreased [Recovered/Resolved]
  - COVID-19 [Recovered/Resolved]
